FAERS Safety Report 9914522 (Version 1)
Quarter: 2014Q1

REPORT INFORMATION
  Report Type: Spontaneous
  Country: US (occurrence: US)
  Receive Date: 20140220
  Receipt Date: 20140220
  Transmission Date: 20141002
  Serious: No
  Sender: FDA-Public Use
  Company Number: US-TARO-2013P1013364

PATIENT
  Age: 44 Year
  Sex: Female

DRUGS (2)
  1. FLUOCINONIDE [Suspect]
     Indication: PSORIASIS
     Route: 061
     Dates: start: 2013
  2. PHENTERMINE [Suspect]
     Dates: start: 20130710, end: 20130711

REACTIONS (4)
  - Pruritus [Recovered/Resolved]
  - Urticaria [Recovered/Resolved]
  - Drug interaction [Recovered/Resolved]
  - Erythema [Recovered/Resolved]
